FAERS Safety Report 21914681 (Version 1)
Quarter: 2023Q1

REPORT INFORMATION
  Report Type: Report from Study
  Country: IT (occurrence: IT)
  Receive Date: 20230126
  Receipt Date: 20230126
  Transmission Date: 20230417
  Serious: Yes (Hospitalization)
  Sender: FDA-Public Use
  Company Number: None

PATIENT
  Age: 71 Year
  Sex: Female

DRUGS (6)
  1. REMERON [Suspect]
     Active Substance: MIRTAZAPINE
     Dosage: 6 UNIT OF MEASURE: DOSING UNIT FREQUENCY OF ADMINISTRATION: TOTAL ROUTE OF ADMINISTRATION: ORAL
     Route: 048
     Dates: start: 20220621, end: 20220621
  2. OMEPRAZOLE [Suspect]
     Active Substance: OMEPRAZOLE
     Dosage: DOSAGE: 6 UNIT OF MEASURE: DOSING UNIT FREQUENCY OF ADMINISTRATION: TOTAL ROUTE OF ADMINISTRATION: O
     Route: 048
     Dates: start: 20220621, end: 20220621
  3. VENLAFAXINE HYDROCHLORIDE [Suspect]
     Active Substance: VENLAFAXINE HYDROCHLORIDE
     Dosage: DOSAGE: 16 UNIT OF MEASURE: DOSING UNIT FREQUENCY OF ADMINISTRATION: TOTAL ROUTE OF ADMINISTRATION:
     Route: 048
     Dates: start: 20220621, end: 20220621
  4. RIVOTRIL [Suspect]
     Active Substance: CLONAZEPAM
     Dosage: DOSAGE: 20 UNIT OF MEASURE: MILLILITRES FREQUENCY OF ADMINISTRATION: TOTAL ROUTE OF ADMINISTRATION:
     Route: 048
     Dates: start: 20220621, end: 20220621
  5. TEGRETOL [Suspect]
     Active Substance: CARBAMAZEPINE
     Dosage: DOSAGE: 25 UNIT OF MEASURE: DOSING UNIT FREQUENCY OF ADMINISTRATION: TOTAL ROUTE OF ADMINISTRATION:
     Route: 048
     Dates: start: 20220621, end: 20220621
  6. TRAMADOL HYDROCHLORIDE [Suspect]
     Active Substance: TRAMADOL HYDROCHLORIDE
     Dosage: DOSAGE: 10 UNIT OF MEASURE: MILLILITRES FREQUENCY OF ADMINISTRATION: TOTAL ROUTE OF ADMINISTRATION:
     Route: 048
     Dates: start: 20220621, end: 20220621

REACTIONS (2)
  - Sopor [Recovering/Resolving]
  - Coma [Recovering/Resolving]

NARRATIVE: CASE EVENT DATE: 20220621
